FAERS Safety Report 8573001 (Version 2)
Quarter: 2012Q4

REPORT INFORMATION
  Report Type: 
  Country: US (occurrence: US)
  Receive Date: 20120522
  Receipt Date: 20121126
  Transmission Date: 20130627
  Serious: Yes (Hospitalization)
  Sender: FDA-Public Use
  Company Number: US-BAYER-2012-049416

PATIENT
  Age: 42 Year
  Sex: Female
  Weight: 68 kg

DRUGS (21)
  1. YAZ [Suspect]
     Indication: HOT FLASHES
     Dosage: UNK
     Dates: start: 201006, end: 201107
  2. GIANVI [Suspect]
     Dosage: UNK
     Dates: start: 201006, end: 201107
  3. MAXALT [Concomitant]
     Indication: HEADACHE
     Dosage: 10 mg, QD
  4. VITAMIN D [Concomitant]
  5. MULTIVITAMIN [Concomitant]
  6. PROVENTIL HFA [Concomitant]
     Indication: WHEEZING
     Dosage: 2 puff(s), every 4-6 hours as needed
  7. EPIPEN [Concomitant]
     Indication: ANAPHYLAXIS
     Dosage: 0.1 mg/ml, UNK
  8. CETIRIZINE [Concomitant]
     Dosage: 10 mg, UNK
  9. OMEPRAZOLE [Concomitant]
     Dosage: 40 mg, QD
  10. TORADOL [Concomitant]
     Route: 042
  11. PROTONIX [Concomitant]
     Route: 042
  12. ZOFRAN [Concomitant]
     Route: 042
  13. DILAUDID [Concomitant]
     Route: 042
  14. MORPHINE [Concomitant]
     Route: 042
  15. ROCEPHIN [Concomitant]
     Route: 042
  16. ALBUTEROL [Concomitant]
     Dosage: UNK UNK, PRN
     Route: 055
  17. PRILOSEC [Concomitant]
     Dosage: 20 mg, UNK
  18. ULTRACET [Concomitant]
     Dosage: every 6 hours as needed
  19. RESTORIL [Concomitant]
     Dosage: 15 mg, HS
  20. LEVAQUIN [Concomitant]
  21. STEROIDS [Concomitant]

REACTIONS (9)
  - Pulmonary embolism [Recovered/Resolved]
  - Pulmonary infarction [Recovered/Resolved]
  - Injury [None]
  - Deep vein thrombosis [None]
  - Pain [Recovered/Resolved]
  - General physical health deterioration [Recovered/Resolved]
  - Emotional distress [None]
  - Anxiety [None]
  - Pain [None]
